FAERS Safety Report 6283770-X (Version None)
Quarter: 2009Q3

REPORT INFORMATION
  Report Type: 
  Country: None (occurrence: None)
  Receive Date: 20090724
  Receipt Date: 20070920
  Transmission Date: 20100115
  Serious: Yes (Hospitalization, Other)
  Sender: FDA-Public Use
  Company Number: US-ASTRAZENECA-2007UW16429

PATIENT
  Age: 542 Month
  Sex: Female
  Weight: 74.4 kg

DRUGS (24)
  1. SEROQUEL [Suspect]
     Indication: SLEEP DISORDER
     Route: 048
     Dates: start: 19970101
  2. SEROQUEL [Suspect]
     Route: 048
     Dates: start: 20041104
  3. PREDNISONE TAB [Concomitant]
     Dates: start: 19850101, end: 20030301
  4. ZOLOFT [Concomitant]
     Route: 048
  5. XANAX [Concomitant]
     Route: 048
  6. PERCOCET [Concomitant]
     Dosage: 5/325 MG ONE TABLET BID
     Route: 048
  7. METHADONE HCL [Concomitant]
  8. STAVUDINE [Concomitant]
  9. 3TC [Concomitant]
  10. NELFINAVIR [Concomitant]
     Route: 048
     Dates: start: 19991001, end: 20000428
  11. EPIVIR [Concomitant]
     Route: 048
  12. ZERIT [Concomitant]
     Route: 048
  13. NEVIRAPINE [Concomitant]
     Dates: start: 20000401, end: 20000609
  14. ABACAVIR [Concomitant]
  15. MOTRIN [Concomitant]
  16. TORADOL [Concomitant]
  17. CHLORAL HYDRATE [Concomitant]
     Dates: start: 20020101
  18. WELLBUTRIN [Concomitant]
  19. DOXEPIN HYDROCHLORIDE [Concomitant]
  20. CELEXA [Concomitant]
  21. FUROSEMIDE [Concomitant]
  22. DEPAKOTE [Concomitant]
  23. GLYBURIDE [Concomitant]
  24. STRATTERA [Concomitant]

REACTIONS (9)
  - CHEST PAIN [None]
  - CONFUSIONAL STATE [None]
  - DIABETES MELLITUS [None]
  - DIZZINESS [None]
  - DRY MOUTH [None]
  - HEADACHE [None]
  - NEUROPATHY PERIPHERAL [None]
  - THROMBOCYTOPENIA [None]
  - TREMOR [None]
